FAERS Safety Report 12397524 (Version 1)
Quarter: 2016Q2

REPORT INFORMATION
  Report Type: Spontaneous
  Country: US (occurrence: US)
  Receive Date: 20160524
  Receipt Date: 20160524
  Transmission Date: 20160815
  Serious: No
  Sender: FDA-Public Use
  Company Number: US-GLAXOSMITHKLINE-US2016070961

PATIENT
  Sex: Female

DRUGS (3)
  1. BUPROPION. [Suspect]
     Active Substance: BUPROPION
     Indication: DEPRESSION
     Dosage: 300 MG, QD
     Route: 048
  2. BUPROPION HCL MODIFIED-RELEASE TABLET [Suspect]
     Active Substance: BUPROPION HYDROCHLORIDE
     Indication: DEPRESSION
  3. BUPROPION SR PROLONGED-RELEASE TABLET [Suspect]
     Active Substance: BUPROPION
     Indication: DEPRESSION

REACTIONS (2)
  - Therapeutic response changed [Recovered/Resolved]
  - Drug ineffective [Recovered/Resolved]
